FAERS Safety Report 4575738-6 (Version None)
Quarter: 2005Q1

REPORT INFORMATION
  Report Type: 
  Country: None (occurrence: None)
  Receive Date: 20050209
  Receipt Date: 20050126
  Transmission Date: 20050727
  Serious: Yes (Other)
  Sender: FDA-Public Use
  Company Number: US-GLAXOSMITHKLINE-A0542385A

PATIENT
  Age: 60 Year
  Sex: Male

DRUGS (2)
  1. COMMIT [Suspect]
     Indication: SMOKING CESSATION THERAPY
     Route: 002
     Dates: start: 20030101, end: 20050123
  2. BLOOD PRESSURE MEDICATION [Suspect]

REACTIONS (2)
  - COUGH [None]
  - LIVER FUNCTION TEST ABNORMAL [None]
